FAERS Safety Report 9247705 (Version 1)
Quarter: 2013Q2

REPORT INFORMATION
  Report Type: Spontaneous
  Country: US (occurrence: None)
  Receive Date: 20130419
  Receipt Date: 20130419
  Transmission Date: 20140414
  Serious: No
  Sender: FDA-Public Use
  Company Number: None

PATIENT
  Age: 22 Year
  Sex: Male
  Weight: 52 kg

DRUGS (11)
  1. HYDROMORPHONE [Suspect]
     Dosage: Q4 PRN
     Route: 042
     Dates: start: 20130318, end: 20130321
  2. ALPRAZOLAM [Concomitant]
  3. MS CONTIN [Concomitant]
  4. DIVALPROEX [Concomitant]
  5. LACOSAMIDE [Concomitant]
  6. METOPROLOL [Concomitant]
  7. LACTULOSE [Concomitant]
  8. MORPHINE [Concomitant]
  9. PROTONIX [Concomitant]
  10. SERTRALINE [Concomitant]
  11. LEVETIRACETAM [Concomitant]

REACTIONS (3)
  - Cyanosis [None]
  - Unresponsive to stimuli [None]
  - Breath sounds abnormal [None]
